FAERS Safety Report 24245257 (Version 1)
Quarter: 2024Q3

REPORT INFORMATION
  Report Type: Spontaneous
  Country: UA (occurrence: UA)
  Receive Date: 20240823
  Receipt Date: 20240823
  Transmission Date: 20241016
  Serious: Yes (Death)
  Sender: ABBVIE
  Company Number: UA-ABBVIE-5890753

PATIENT
  Age: 65 Year
  Sex: Male

DRUGS (1)
  1. VENETOCLAX [Suspect]
     Active Substance: VENETOCLAX
     Indication: Acute myeloid leukaemia
     Route: 048
     Dates: start: 202405, end: 202406

REACTIONS (2)
  - Leukaemic infiltration [Fatal]
  - Leukopenia [Fatal]

NARRATIVE: CASE EVENT DATE: 20240610
